FAERS Safety Report 4279440-X (Version None)
Quarter: 2004Q1

REPORT INFORMATION
  Report Type: 
  Country: None (occurrence: None)
  Receive Date: 20040123
  Receipt Date: 20040116
  Transmission Date: 20041129
  Serious: Yes (Hospitalization, Disabling, Other)
  Sender: FDA-Public Use
  Company Number: 2003-11-0280

PATIENT
  Sex: Male
  Weight: 56 kg

DRUGS (4)
  1. INTRON A [Suspect]
     Indication: HEPATITIS C
     Dosage: 6 MU QD INTRAMUSCULAR
     Route: 030
     Dates: start: 20030520, end: 20031001
  2. FAMOTIDINE  40 MG [Concomitant]
  3. GLIMEPIRIDE 5 MG [Concomitant]
  4. MONOAMMONIUM GLYUCYRRHIZINATE [Concomitant]

REACTIONS (3)
  - ABASIA [None]
  - DELIRIUM [None]
  - THALAMUS HAEMORRHAGE [None]
